FAERS Safety Report 6854207-4 (Version None)
Quarter: 2010Q3

REPORT INFORMATION
  Report Type: 
  Country: None (occurrence: None)
  Receive Date: 20100717
  Receipt Date: 20071228
  Transmission Date: 20110219
  Serious: Yes (Other)
  Sender: FDA-Public Use
  Company Number: US-PFIZER INC-2008000746

PATIENT
  Sex: Female
  Weight: 53.1 kg

DRUGS (7)
  1. CHANTIX [Suspect]
     Indication: SMOKING CESSATION THERAPY
     Route: 048
     Dates: start: 20071007, end: 20071119
  2. XANAX [Concomitant]
     Route: 048
  3. CYMBALTA [Concomitant]
     Route: 048
  4. NAPROXEN [Concomitant]
     Route: 048
  5. CELLCEPT [Concomitant]
     Route: 048
  6. VICODIN [Concomitant]
     Route: 048
  7. PREVACID [Concomitant]
     Route: 048

REACTIONS (3)
  - AGGRESSION [None]
  - FEELING ABNORMAL [None]
  - PERSONALITY CHANGE [None]
